FAERS Safety Report 6139945-3 (Version None)
Quarter: 2009Q2

REPORT INFORMATION
  Report Type: 
  Country: None (occurrence: None)
  Receive Date: 20090401
  Receipt Date: 20090324
  Transmission Date: 20091009
  Serious: Yes (Hospitalization)
  Sender: FDA-Public Use
  Company Number: US-ELI_LILLY_AND_COMPANY-US200902001873

PATIENT
  Sex: Female
  Weight: 98.413 kg

DRUGS (18)
  1. BYETTA [Suspect]
     Indication: TYPE 2 DIABETES MELLITUS
     Dosage: 5 UG, 2/D
     Route: 058
     Dates: start: 20050101, end: 20081217
  2. BYETTA [Suspect]
     Dosage: 5 UG, 2/D
     Route: 058
     Dates: start: 20081222, end: 20090122
  3. BYETTA [Suspect]
     Dosage: 5 UG, 2/D
     Route: 058
     Dates: start: 20090205
  4. COREG [Concomitant]
     Indication: BLOOD PRESSURE
     Dosage: 60 MG, UNK
     Dates: end: 20090201
  5. COREG [Concomitant]
     Dosage: 25 MG, UNK
     Dates: start: 20090201, end: 20090201
  6. LISINOPRIL [Concomitant]
     Indication: BLOOD PRESSURE
     Dosage: 10 MG, DAILY (1/D)
     Dates: end: 20090201
  7. LISINOPRIL [Concomitant]
     Dosage: 30 MG, UNK
     Dates: start: 20090201
  8. GLIPIZIDE [Concomitant]
     Indication: TYPE 2 DIABETES MELLITUS
     Dosage: 10 MG, DAILY (1/D)
  9. LEVOTHYROXINE SODIUM [Concomitant]
     Indication: HYPOTHYROIDISM
     Dosage: 75 UG, DAILY (1/D)
  10. CYTOMEL [Concomitant]
     Indication: HYPOTHYROIDISM
     Dosage: 12.5 UG, UNK
     Dates: start: 19540101
  11. HYDROCHLOROTHIAZIDE [Concomitant]
     Indication: DIURETIC THERAPY
  12. POTASSIUM CITRATE [Concomitant]
     Indication: CARDIAC DISORDER
     Dosage: 1080 MG, DAILY (1/D)
  13. POTASSIUM CHLORIDE [Concomitant]
     Indication: CARDIAC DISORDER
     Dosage: 30 MEQ, DAILY (1/D)
     Dates: start: 20090201
  14. POTASSIUM CHLORIDE [Concomitant]
     Indication: CARDIAC DISORDER
     Dosage: 10 MEQ, UNK
  15. TORSEMIDE [Concomitant]
     Indication: DIURETIC THERAPY
     Dosage: 10 MG, UNK
  16. PRAVACHOL [Concomitant]
     Indication: BLOOD CHOLESTEROL
     Dates: start: 20090201
  17. COUMADIN [Concomitant]
     Indication: CARDIAC DISORDER
     Dosage: 7 MG, DAILY (1/D)
  18. DILTIAZEM [Concomitant]
     Indication: CARDIAC DISORDER
     Dosage: 180 MG, DAILY (1/D)

REACTIONS (7)
  - ATRIAL FIBRILLATION [None]
  - BLOOD GLUCOSE INCREASED [None]
  - ECZEMA [None]
  - FOOD POISONING [None]
  - HYPERTENSION [None]
  - INCORRECT DOSE ADMINISTERED [None]
  - PSORIASIS [None]
